FAERS Safety Report 17460292 (Version 5)
Quarter: 2020Q2

REPORT INFORMATION
  Report Type: Spontaneous
  Country: US (occurrence: US)
  Receive Date: 20200226
  Receipt Date: 20200408
  Transmission Date: 20200713
  Serious: No
  Sender: FDA-Public Use
  Company Number: US-PFIZER INC-2020083039

PATIENT
  Age: 67 Year
  Sex: Female
  Weight: 53.52 kg

DRUGS (5)
  1. TRAMADOL. [Concomitant]
     Active Substance: TRAMADOL
     Dosage: UNK (5 MONTH)
  2. FASLODEX [Concomitant]
     Active Substance: FULVESTRANT
     Dosage: 1 MG, UNK (MONTH)
  3. FASLODEX [Concomitant]
     Active Substance: FULVESTRANT
     Dosage: UNK (4 MONTH)
  4. IBRANCE [Suspect]
     Active Substance: PALBOCICLIB
     Indication: BREAST CANCER METASTATIC
     Dosage: 75 MG, 1X/DAY
  5. TRAMADOL. [Concomitant]
     Active Substance: TRAMADOL
     Dosage: 50 MG, AS NEEDED [50 MG Q (EVERY) 6H PRN (AS NEEDED)]

REACTIONS (2)
  - Stomatitis [Recovered/Resolved]
  - Fatigue [Not Recovered/Not Resolved]

NARRATIVE: CASE EVENT DATE: 20200212
